FAERS Safety Report 14687064 (Version 1)
Quarter: 2018Q1

REPORT INFORMATION
  Report Type: Spontaneous
  Country: US (occurrence: US)
  Receive Date: 20180327
  Receipt Date: 20180327
  Transmission Date: 20180509
  Serious: Yes (Hospitalization)
  Sender: FDA-Public Use
  Company Number: US-JNJFOC-20180218284

PATIENT
  Age: 76 Year
  Sex: Female
  Weight: 111 kg

DRUGS (13)
  1. XALATAN [Concomitant]
     Active Substance: LATANOPROST
  2. PRILOSEC [Concomitant]
     Active Substance: OMEPRAZOLE MAGNESIUM
  3. IMBRUVICA [Suspect]
     Active Substance: IBRUTINIB
     Indication: B-CELL SMALL LYMPHOCYTIC LYMPHOMA
     Route: 048
     Dates: start: 20170926, end: 20180219
  4. GABAPENTIN. [Concomitant]
     Active Substance: GABAPENTIN
  5. HYDROCHLOROTHIAZIDE. [Concomitant]
     Active Substance: HYDROCHLOROTHIAZIDE
  6. MULTIVITAMINS [Concomitant]
     Active Substance: VITAMINS
  7. XANAX [Concomitant]
     Active Substance: ALPRAZOLAM
  8. IMBRUVICA [Suspect]
     Active Substance: IBRUTINIB
     Indication: CHRONIC LYMPHOCYTIC LEUKAEMIA
     Route: 048
     Dates: start: 20170926, end: 20180219
  9. VITAMIN C [Concomitant]
     Active Substance: ASCORBIC ACID
  10. NIFEDIPINE. [Concomitant]
     Active Substance: NIFEDIPINE
  11. METOPROLOL. [Concomitant]
     Active Substance: METOPROLOL
  12. MECLIZINE [Concomitant]
     Active Substance: MECLIZINE HYDROCHLORIDE
  13. CENTRUM [Concomitant]
     Active Substance: VITAMINS

REACTIONS (3)
  - Arrhythmia [Unknown]
  - Joint stiffness [Unknown]
  - Musculoskeletal stiffness [Unknown]

NARRATIVE: CASE EVENT DATE: 20180220
